FAERS Safety Report 9242771 (Version 2)
Quarter: 2013Q3

REPORT INFORMATION
  Report Type: Spontaneous
  Country: US (occurrence: US)
  Receive Date: 20130419
  Receipt Date: 20130705
  Transmission Date: 20140515
  Serious: Yes (Life-Threatening, Hospitalization, Disabling, Other)
  Sender: FDA-Public Use
  Company Number: US-ACTELION-A-NJ2013-81340

PATIENT
  Age: 70 Year
  Sex: Male

DRUGS (4)
  1. TRACLEER [Suspect]
     Indication: PULMONARY ARTERIAL HYPERTENSION
     Dosage: 125 MG, BID
     Route: 048
     Dates: start: 20130410, end: 20130521
  2. TRACLEER [Suspect]
     Dosage: 62.5 MG, BID
     Route: 048
     Dates: start: 20110204, end: 20110303
  3. TRACLEER [Suspect]
     Dosage: 125 MG, BID
     Route: 048
     Dates: start: 20110304, end: 20130220
  4. TRACLEER [Suspect]
     Dosage: 62.5 MG, BID
     Route: 048
     Dates: start: 20130322, end: 20130409

REACTIONS (4)
  - Liver function test abnormal [Unknown]
  - Aspartate aminotransferase increased [Unknown]
  - Alanine aminotransferase increased [Unknown]
  - Hepatic function abnormal [Recovering/Resolving]
